FAERS Safety Report 7805930-6 (Version None)
Quarter: 2011Q4

REPORT INFORMATION
  Report Type: 
  Country: None (occurrence: None)
  Receive Date: 20111007
  Receipt Date: 20111007
  Transmission Date: 20120403
  Serious: Yes (Other)
  Sender: FDA-Public Use
  Company Number: None

PATIENT
  Age: 52 Year
  Sex: Male
  Weight: 84.4 kg

DRUGS (8)
  1. ABRAXANE [Suspect]
     Indication: SQUAMOUS CELL CARCINOMA
     Dosage: 20MG/M2, WEEKLY, IV
     Route: 042
     Dates: start: 20110831
  2. DECADRON [Concomitant]
  3. ZANTAC [Concomitant]
  4. COMPAZINE [Concomitant]
  5. CISPLATIN [Suspect]
     Indication: SQUAMOUS CELL CARCINOMA
     Dosage: 20MG/M2, WEEKLY, IV
     Route: 042
     Dates: start: 20111005
  6. ZOFRAN [Concomitant]
  7. BENADRYL [Concomitant]
  8. CETUXIMAB [Concomitant]

REACTIONS (1)
  - LYMPHOCYTE COUNT DECREASED [None]
